FAERS Safety Report 8968129 (Version 2)
Quarter: 2013Q1

REPORT INFORMATION
  Report Type: Spontaneous
  Country: US (occurrence: US)
  Receive Date: 20121218
  Receipt Date: 20130103
  Transmission Date: 20140127
  Serious: No
  Sender: FDA-Public Use
  Company Number: US-PFIZER INC-2012318338

PATIENT
  Age: 56 Year
  Sex: Female
  Weight: 111 kg

DRUGS (10)
  1. MORPHINE SULFATE [Suspect]
     Indication: BACK PAIN
     Dosage: 30 MG, 2X/DAY
     Dates: start: 2011
  2. LORCET [Suspect]
     Indication: BACK PAIN
     Dosage: 10/650MG, EVERY 4 HRS
  3. ZOCOR [Concomitant]
     Indication: BLOOD CHOLESTEROL ABNORMAL
     Dosage: 40 MG, UNK
  4. CARDIZEM CD [Concomitant]
     Indication: HYPERTENSION
     Dosage: 240 MG, UNK
  5. METFORMIN [Concomitant]
     Indication: BLOOD GLUCOSE ABNORMAL
     Dosage: 1000 MG, UNK
  6. ACTOS [Concomitant]
     Indication: BLOOD GLUCOSE ABNORMAL
     Dosage: 45 MG, UNK
  7. EFFEXOR-XR [Concomitant]
     Indication: GENERAL PHYSICAL HEALTH DETERIORATION
     Dosage: 150 MG, UNK
  8. EFFEXOR-XR [Concomitant]
     Indication: PAIN
  9. REMERON [Concomitant]
     Indication: GENERAL PHYSICAL HEALTH DETERIORATION
     Dosage: 15 MG, UNK
  10. REMERON [Concomitant]
     Indication: PAIN

REACTIONS (1)
  - Drug ineffective [Unknown]
